FAERS Safety Report 24208774 (Version 4)
Quarter: 2024Q4

REPORT INFORMATION
  Report Type: Spontaneous
  Country: US (occurrence: US)
  Receive Date: 20240814
  Receipt Date: 20241126
  Transmission Date: 20250115
  Serious: Yes (Hospitalization)
  Sender: BIOVITRUM
  Company Number: US-BIOVITRUM-2024-US-010844

PATIENT
  Age: 77 Year
  Sex: Female

DRUGS (9)
  1. VONJO [Suspect]
     Active Substance: PACRITINIB
     Indication: Polycythaemia
     Dosage: 2 CAPSULES TWICE A DAY
     Route: 048
     Dates: start: 20240720
  2. VONJO [Suspect]
     Active Substance: PACRITINIB
     Indication: Myelofibrosis
     Dosage: 100 MG 2 CAPSULES BY MOUTH TWICE DAILY?200 MG 2X1 DAILY
     Route: 048
     Dates: start: 20240719
  3. VONJO [Suspect]
     Active Substance: PACRITINIB
     Dates: start: 20241105
  4. VONJO [Suspect]
     Active Substance: PACRITINIB
     Dosage: ALTERNATING BETWEEN 100MG AND 200MG DAILY
  5. HYDROXYUREA [Concomitant]
     Active Substance: HYDROXYUREA
     Indication: Product used for unknown indication
  6. INTERFERON [Concomitant]
     Active Substance: INTERFERON
     Indication: Product used for unknown indication
  7. FOLIC ACID [Concomitant]
     Active Substance: FOLIC ACID
     Indication: Product used for unknown indication
     Route: 048
  8. HYDROCHLOROTHIAZIDE [Concomitant]
     Active Substance: HYDROCHLOROTHIAZIDE
     Indication: Product used for unknown indication
  9. VITAMINS [Concomitant]
     Active Substance: VITAMINS
     Indication: Product used for unknown indication
     Route: 048

REACTIONS (5)
  - Diarrhoea [Unknown]
  - Joint swelling [Unknown]
  - Arthralgia [Unknown]
  - Cellulitis [Not Recovered/Not Resolved]
  - Platelet count increased [Recovering/Resolving]
